FAERS Safety Report 13100539 (Version 1)
Quarter: 2017Q1

REPORT INFORMATION
  Report Type: Spontaneous
  Country: US (occurrence: US)
  Receive Date: 20170109
  Receipt Date: 20170109
  Transmission Date: 20170428
  Serious: Yes (Hospitalization, Disabling)
  Sender: FDA-Public Use
  Company Number: None

PATIENT
  Age: 59 Year
  Sex: Female
  Weight: 77.85 kg

DRUGS (6)
  1. HYDROCHLOROTHIAZIDE. [Concomitant]
     Active Substance: HYDROCHLOROTHIAZIDE
  2. CQ10 [Concomitant]
     Active Substance: UBIDECARENONE
  3. PRAVISTATIN [Suspect]
     Active Substance: PRAVASTATIN
     Indication: BLOOD CHOLESTEROL INCREASED
     Dosage: QUANTITY:1 TABLET(S); AT BEDTIME; ORAL?
     Route: 048
     Dates: start: 20120901, end: 20161116
  4. LISINOPRIL. [Concomitant]
     Active Substance: LISINOPRIL
  5. NIACIN. [Concomitant]
     Active Substance: NIACIN
  6. TURMENIC [Concomitant]

REACTIONS (13)
  - Pain in extremity [None]
  - Decreased interest [None]
  - Arthralgia [None]
  - Muscle spasms [None]
  - Aphasia [None]
  - Vision blurred [None]
  - Back pain [None]
  - Chest pain [None]
  - Feeling abnormal [None]
  - Anxiety [None]
  - Movement disorder [None]
  - Stress [None]
  - Fatigue [None]

NARRATIVE: CASE EVENT DATE: 20130101
